FAERS Safety Report 5371011-7 (Version None)
Quarter: 2007Q2

REPORT INFORMATION
  Report Type: 
  Country: None (occurrence: None)
  Receive Date: 20070626
  Receipt Date: 20070616
  Transmission Date: 20071010
  Serious: Yes (Other)
  Sender: FDA-Public Use
  Company Number: BR-PFIZER INC-2007039348

PATIENT
  Sex: Female

DRUGS (3)
  1. SILDENAFIL (PAH) [Suspect]
     Indication: PULMONARY HYPERTENSION
     Route: 048
  2. SILDENAFIL (PAH) [Suspect]
     Route: 048
  3. ADALAT [Concomitant]
     Route: 048

REACTIONS (5)
  - ABDOMINAL PAIN [None]
  - BACK PAIN [None]
  - DYSPNOEA [None]
  - HEART RATE INCREASED [None]
  - PULMONARY OEDEMA [None]
